FAERS Safety Report 4776817-0 (Version None)
Quarter: 2005Q3

REPORT INFORMATION
  Report Type: 
  Country: None (occurrence: None)
  Receive Date: 20050921
  Receipt Date: 20050913
  Transmission Date: 20060218
  Serious: Yes (Hospitalization)
  Sender: FDA-Public Use
  Company Number: TPA2005A01046

PATIENT
  Age: 60 Year
  Sex: Male
  Weight: 100.6985 kg

DRUGS (6)
  1. ACTOS [Suspect]
     Indication: DIABETES MELLITUS NON-INSULIN-DEPENDENT
     Dosage: 45 MG, 1 IN 1 D, PER ORAL
     Route: 048
     Dates: end: 20050908
  2. GLYBURIDE [Concomitant]
  3. METFORMIN HCL [Concomitant]
  4. HUMALOG [Concomitant]
  5. NOVOLIN N [Concomitant]
  6. NOVOLIN 85/15 [Concomitant]

REACTIONS (10)
  - HEPATIC INFECTION [None]
  - HEPATITIS [None]
  - KIDNEY INFECTION [None]
  - LIPASE INCREASED [None]
  - NEPHRITIS [None]
  - PANCREAS INFECTION [None]
  - PANCREATITIS [None]
  - PYREXIA [None]
  - RENAL CYST [None]
  - VITAL FUNCTIONS ABNORMAL [None]
